FAERS Safety Report 9303854 (Version 4)
Quarter: 2013Q3

REPORT INFORMATION
  Report Type: Report from Study
  Country: IL (occurrence: IL)
  Receive Date: 20130522
  Receipt Date: 20130912
  Transmission Date: 20140515
  Serious: Yes (Life-Threatening, Hospitalization)
  Sender: FDA-Public Use
  Company Number: IL-BAYER-2013-051786

PATIENT
  Age: 60 Year
  Sex: Male
  Weight: 90 kg

DRUGS (20)
  1. REGORAFENIB [Suspect]
     Indication: ADENOCARCINOMA OF COLON
     Dosage: DAILY DOSE 150 MG
     Dates: start: 20120830, end: 201209
  2. REGORAFENIB [Suspect]
     Indication: ADENOCARCINOMA OF COLON
     Dosage: DAILY DOSE 100 MG
     Dates: start: 20120928, end: 20121018
  3. REGORAFENIB [Suspect]
     Indication: ADENOCARCINOMA OF COLON
     Dosage: DAILY DOSE 160 MG
     Dates: start: 20121029, end: 20121117
  4. REGORAFENIB [Suspect]
     Indication: ADENOCARCINOMA OF COLON
     Dosage: DAILY DOSE 100 MG
     Dates: start: 20121203, end: 20121223
  5. REGORAFENIB [Suspect]
     Indication: ADENOCARCINOMA OF COLON
     Dosage: UNK
     Dates: start: 20121230, end: 20130119
  6. REGORAFENIB [Suspect]
     Indication: ADENOCARCINOMA OF COLON
     Dosage: UNK
     Dates: start: 20130127, end: 201302
  7. REGORAFENIB [Suspect]
     Indication: ADENOCARCINOMA OF COLON
     Dosage: UNK
     Dates: start: 20130224, end: 201303
  8. REGORAFENIB [Suspect]
     Indication: ADENOCARCINOMA OF COLON
     Dosage: UNK
     Dates: start: 20130324, end: 201304
  9. REGORAFENIB [Suspect]
     Indication: ADENOCARCINOMA OF COLON
     Dosage: DAILY DOSE 160 MG
     Dates: start: 20130421, end: 20130421
  10. PERCOCET [Concomitant]
     Indication: ABDOMINAL PAIN
     Dosage: 5 MG, QID
     Route: 048
     Dates: start: 2012, end: 201301
  11. AMLODIPINE [Concomitant]
     Indication: ESSENTIAL HYPERTENSION
     Dosage: 10 MG, QD
     Route: 048
     Dates: start: 1998
  12. TRITACE [Concomitant]
     Indication: ESSENTIAL HYPERTENSION
     Dosage: 5 MG, BID
     Route: 048
     Dates: start: 1998
  13. BEZAFIBRATE [Concomitant]
     Indication: HYPERCHOLESTEROLAEMIA
     Dosage: 400 MG, QD
     Route: 048
     Dates: start: 1995
  14. FLEXITOL [Concomitant]
     Indication: SKIN EXFOLIATION
     Dosage: BID 25%
     Route: 062
     Dates: start: 20120927
  15. OPTALGIN [Concomitant]
     Indication: ABDOMINAL PAIN
     Dosage: 500 MG, TID
     Route: 048
     Dates: start: 20121202
  16. FENTANYL [Concomitant]
     Indication: ABDOMINAL PAIN
     Dosage: 12 MCG/ EVERY 3 DAYS
     Route: 062
     Dates: start: 20130106, end: 20130217
  17. FENTANYL [Concomitant]
     Indication: ABDOMINAL PAIN
     Dosage: 26 MCG/H EVERY 3 DAYS
     Route: 062
     Dates: start: 20130221
  18. LOPERAMIDE HCL [Concomitant]
     Indication: DIARRHOEA
     Dosage: 2 MG, BID
     Route: 048
     Dates: start: 20130317, end: 20130318
  19. ELTROXIN [Concomitant]
     Indication: HYPERTHYROIDISM
     Dosage: 50 MG, QID
     Route: 048
     Dates: start: 20130325, end: 20130330
  20. EUTHYROX [Concomitant]
     Indication: HYPERTHYROIDISM
     Dosage: 500 MG, QD
     Route: 048
     Dates: start: 20130114

REACTIONS (1)
  - Myocardial infarction [Recovered/Resolved]
